FAERS Safety Report 10911607 (Version 1)
Quarter: 2015Q1

REPORT INFORMATION
  Report Type: Spontaneous
  Country: US (occurrence: None)
  Receive Date: 20150309
  Receipt Date: 20150309
  Transmission Date: 20150721
  Serious: No
  Sender: FDA-Public Use
  Company Number: None

PATIENT
  Age: 36 Year
  Sex: Female
  Weight: 66.6 kg

DRUGS (2)
  1. JUNEL FE (NORETHINDRONE + ETHINYL ESTRADIOL) [Concomitant]
  2. GADAVIST [Suspect]
     Active Substance: GADOBUTROL

REACTIONS (3)
  - Nausea [None]
  - Urticaria [None]
  - Vomiting [None]

NARRATIVE: CASE EVENT DATE: 20150202
